FAERS Safety Report 4661209-5 (Version None)
Quarter: 2005Q2

REPORT INFORMATION
  Report Type: 
  Country: None (occurrence: None)
  Receive Date: 20050422
  Receipt Date: 20040813
  Transmission Date: 20051028
  Serious: Yes (Other)
  Sender: FDA-Public Use
  Company Number: 1781-063-3

PATIENT
  Age: 24 Year
  Sex: Female
  Weight: 85.2762 kg

DRUGS (3)
  1. DEXFERRUM [Suspect]
     Indication: IRON DEFICIENCY
     Dosage: 500MG IV FIRST DOSE-ONLY RECEIVED 3CC
     Route: 042
     Dates: start: 20040426
  2. ASACOL [Concomitant]
  3. NIFEREX-150 [Concomitant]

REACTIONS (5)
  - ABDOMINAL PAIN [None]
  - CHEST DISCOMFORT [None]
  - DIARRHOEA [None]
  - DYSPNOEA [None]
  - ERYTHEMA [None]
